FAERS Safety Report 5276669-9 (Version None)
Quarter: 2007Q1

REPORT INFORMATION
  Report Type: 
  Country: None (occurrence: None)
  Receive Date: 20070327
  Receipt Date: 20070314
  Transmission Date: 20070707
  Serious: Yes (Death)
  Sender: FDA-Public Use
  Company Number: ES-NOVOPROD-261317

PATIENT
  Age: 41 Year
  Sex: Male
  Weight: 80 kg

DRUGS (4)
  1. NOVOSEVEN [Suspect]
     Indication: HAEMODYNAMIC INSTABILITY
     Dosage: 1.2 MG, 45 MCG/KG
     Dates: start: 20060911
  2. NOVOSEVEN [Suspect]
     Dosage: 1.2 MG, 45 MCG/KG
  3. NOVOSEVEN [Suspect]
     Dosage: 1.2 MG, 45 MCG/KG
  4. PLASMA [Concomitant]

REACTIONS (4)
  - ACUTE RESPIRATORY DISTRESS SYNDROME [None]
  - MULTI-ORGAN FAILURE [None]
  - NECROSIS [None]
  - VENOUS THROMBOSIS [None]
